FAERS Safety Report 9959744 (Version 1)
Quarter: 2014Q1

REPORT INFORMATION
  Report Type: Spontaneous
  Country: US (occurrence: None)
  Receive Date: 20140228
  Receipt Date: 20140228
  Transmission Date: 20141002
  Serious: Yes (Life-Threatening, Hospitalization)
  Sender: FDA-Public Use
  Company Number: None

PATIENT
  Age: 71 Year
  Sex: Female
  Weight: 63 kg

DRUGS (3)
  1. CISPLATIN [Suspect]
     Indication: LUNG NEOPLASM MALIGNANT
     Route: 041
     Dates: start: 20140203
  2. PEMETREXED [Concomitant]
  3. PANOBINOSTAT [Concomitant]

REACTIONS (3)
  - VIIth nerve paralysis [None]
  - Hemiparesis [None]
  - Ischaemic stroke [None]
